FAERS Safety Report 20085120 (Version 1)
Quarter: 2021Q4

REPORT INFORMATION
  Report Type: Spontaneous
  Country: DE (occurrence: DE)
  Receive Date: 20211118
  Receipt Date: 20211118
  Transmission Date: 20220303
  Serious: Yes (Other)
  Sender: FDA-Public Use
  Company Number: None

PATIENT
  Age: 74 Year
  Sex: Male
  Weight: 70 kg

DRUGS (4)
  1. OXALIPLATIN [Suspect]
     Active Substance: OXALIPLATIN
     Indication: Rectal cancer
     Dosage: 82 DF (50 %)
     Route: 042
     Dates: start: 20200928, end: 20201109
  2. OXALIPLATIN [Suspect]
     Active Substance: OXALIPLATIN
     Dosage: 124 DF (75%)
     Route: 042
     Dates: start: 20200316, end: 20200608
  3. PANITUMUMAB [Concomitant]
     Active Substance: PANITUMUMAB
     Indication: Rectal cancer
     Dosage: 444 DF
     Route: 042
     Dates: start: 20200316, end: 20201109
  4. FLUOROURACIL\LEUCOVORIN CALCIUM\OXALIPLATIN [Concomitant]
     Active Substance: FLUOROURACIL\LEUCOVORIN CALCIUM\OXALIPLATIN
     Indication: Rectal cancer
     Dosage: UNK
     Route: 042
     Dates: start: 20200316, end: 20201109

REACTIONS (1)
  - Polyneuropathy [Not Recovered/Not Resolved]

NARRATIVE: CASE EVENT DATE: 20201203
